FAERS Safety Report 24133702 (Version 1)
Quarter: 2024Q3

REPORT INFORMATION
  Report Type: Spontaneous
  Country: FR (occurrence: FR)
  Receive Date: 20240724
  Receipt Date: 20240724
  Transmission Date: 20241016
  Serious: Yes (Hospitalization)
  Sender: TEVA
  Company Number: None

PATIENT
  Age: 51 Year
  Sex: Male
  Weight: 83 kg

DRUGS (1)
  1. KETOPROFEN [Suspect]
     Active Substance: KETOPROFEN
     Indication: Analgesic intervention supportive therapy
     Dosage: NR
     Route: 048
     Dates: start: 20240611, end: 20240614

REACTIONS (1)
  - Empyema [Unknown]

NARRATIVE: CASE EVENT DATE: 20240622
